FAERS Safety Report 9187593 (Version 2)
Quarter: 2013Q3

REPORT INFORMATION
  Report Type: Report from Study
  Country: US (occurrence: US)
  Receive Date: 20130325
  Receipt Date: 20130913
  Transmission Date: 20140515
  Serious: Yes (Disabling, Other)
  Sender: FDA-Public Use
  Company Number: US-ACTELION-A-US2012-73349

PATIENT
  Age: 61 Year
  Sex: Female

DRUGS (10)
  1. TRACLEER [Suspect]
     Indication: PULMONARY ARTERIAL HYPERTENSION
     Dosage: 125 MG, BID
     Route: 048
     Dates: start: 2010
  2. TRACLEER [Suspect]
     Dosage: 62.5 MG, BID
     Route: 048
     Dates: start: 2009
  3. TRACLEER [Suspect]
     Dosage: 125 MG, BID
     Route: 048
     Dates: start: 2010, end: 2010
  4. TRACLEER [Suspect]
     Dosage: 125 UNK, UNK
     Route: 048
     Dates: start: 2009
  5. LEVOXYL [Concomitant]
     Dosage: 0.50 MG, QD
  6. PRAVASTATIN [Concomitant]
     Dosage: 20 MG, UNK
     Route: 048
  7. VALIUM [Concomitant]
     Dosage: 10 MG, BID
     Route: 048
  8. REVATIO [Concomitant]
     Dosage: 20 MG, TID
  9. SPIRONOLACTONE [Concomitant]
     Dosage: 40 MG, BID
     Route: 048
  10. PRILOSEC [Concomitant]
     Dosage: 20 MG (TITER), UNK
     Route: 048

REACTIONS (20)
  - Muscle atrophy [Not Recovered/Not Resolved]
  - Fall [Recovered/Resolved]
  - Upper limb fracture [Recovered/Resolved]
  - Humerus fracture [Recovered/Resolved]
  - Upper respiratory tract infection [Not Recovered/Not Resolved]
  - Nasopharyngitis [Not Recovered/Not Resolved]
  - Parosmia [Not Recovered/Not Resolved]
  - Functional gastrointestinal disorder [Not Recovered/Not Resolved]
  - Flatulence [Not Recovered/Not Resolved]
  - Polyp [Not Recovered/Not Resolved]
  - Dyspnoea [Recovered/Resolved]
  - Barrett^s oesophagus [Not Recovered/Not Resolved]
  - Fungal infection [Unknown]
  - Eye infection [Recovered/Resolved]
  - Dry eye [Not Recovered/Not Resolved]
  - Cataract [Not Recovered/Not Resolved]
  - Staphylococcal infection [Not Recovered/Not Resolved]
  - Pseudomonas infection [Not Recovered/Not Resolved]
  - Gastrooesophageal reflux disease [Not Recovered/Not Resolved]
  - Infection [Not Recovered/Not Resolved]
